FAERS Safety Report 10133434 (Version 1)
Quarter: 2014Q2

REPORT INFORMATION
  Report Type: Spontaneous
  Country: US (occurrence: US)
  Receive Date: 20140428
  Receipt Date: 20140428
  Transmission Date: 20141212
  Serious: No
  Sender: FDA-Public Use
  Company Number: US-PFIZER INC-2014113974

PATIENT
  Sex: Male

DRUGS (1)
  1. NICOTROL INHALER [Suspect]
     Dosage: UNK
     Route: 055
     Dates: start: 20120717

REACTIONS (3)
  - Productive cough [Unknown]
  - Throat irritation [Unknown]
  - Drug intolerance [Unknown]
